FAERS Safety Report 4352338-4 (Version None)
Quarter: 2004Q2

REPORT INFORMATION
  Report Type: 
  Country: None (occurrence: None)
  Receive Date: 20040427
  Receipt Date: 20040211
  Transmission Date: 20050107
  Serious: Yes (Disabling)
  Sender: FDA-Public Use
  Company Number: WAES 0402USA00955

PATIENT
  Age: 77 Year
  Sex: Female

DRUGS (7)
  1. SINGULAIR [Suspect]
     Indication: RHINITIS ALLERGIC
     Dosage: 10 MG/DAILY/PO
     Route: 048
     Dates: start: 20040101, end: 20040209
  2. COZAAR [Concomitant]
  3. NORVASC [Concomitant]
  4. PRILOSEC [Concomitant]
  5. SYNTHROID [Concomitant]
  6. ATENOLOL [Concomitant]
  7. LACTIC ACID [Concomitant]

REACTIONS (2)
  - ABDOMINAL PAIN [None]
  - HEADACHE [None]
